FAERS Safety Report 10314972 (Version 1)
Quarter: 2014Q3

REPORT INFORMATION
  Report Type: Spontaneous
  Country: NO (occurrence: NO)
  Receive Date: 20140718
  Receipt Date: 20140718
  Transmission Date: 20150326
  Serious: Yes (Death)
  Sender: FDA-Public Use
  Company Number: NO-ASTRAZENECA-2014SE52165

PATIENT
  Age: 27 Year
  Sex: Male

DRUGS (6)
  1. NITRAZEPAM [Interacting]
     Active Substance: NITRAZEPAM
  2. ZOPICLONE [Interacting]
     Active Substance: ZOPICLONE
  3. QUETIAPINE [Suspect]
     Active Substance: QUETIAPINE
     Route: 048
  4. CLONAZEPAM. [Interacting]
     Active Substance: CLONAZEPAM
  5. BUPRENORPHINE [Interacting]
     Active Substance: BUPRENORPHINE
  6. PREGABALIN. [Interacting]
     Active Substance: PREGABALIN

REACTIONS (2)
  - Drug interaction [Fatal]
  - Death [Fatal]

NARRATIVE: CASE EVENT DATE: 201405
